FAERS Safety Report 5075158-4 (Version None)
Quarter: 2006Q3

REPORT INFORMATION
  Report Type: 
  Country: None (occurrence: None)
  Receive Date: 20060807
  Receipt Date: 20060807
  Transmission Date: 20061208
  Serious: Yes (Other)
  Sender: FDA-Public Use
  Company Number: None

PATIENT
  Age: 60 Year
  Sex: Female
  Weight: 107.9561 kg

DRUGS (4)
  1. RISPERDAL [Suspect]
     Dosage: 1 MG QD
  2. RISPERDAL CONSTA [Suspect]
     Dosage: 50 MG EVERY 2 WEEKS
     Dates: start: 20060404
  3. LITHIUM CARBONATE [Concomitant]
  4. AVAPRO [Concomitant]

REACTIONS (7)
  - BLOOD CHOLESTEROL INCREASED [None]
  - BLOOD GLUCOSE INCREASED [None]
  - DEPRESSION [None]
  - GAIT DISTURBANCE [None]
  - INJECTION SITE PAIN [None]
  - MEMORY IMPAIRMENT [None]
  - WEIGHT INCREASED [None]
